FAERS Safety Report 16714417 (Version 1)
Quarter: 2019Q3

REPORT INFORMATION
  Report Type: Report from Study
  Country: VN (occurrence: VN)
  Receive Date: 20190819
  Receipt Date: 20190819
  Transmission Date: 20191004
  Serious: Yes (Death, Other)
  Sender: FDA-Public Use
  Company Number: VN-ROCHE-2376598

PATIENT

DRUGS (2)
  1. CAPECITABINE. [Suspect]
     Active Substance: CAPECITABINE
     Indication: GASTRIC CANCER
     Dosage: 1000 MG/M2 TWICE DAILY FOR 14 DAYS FROM DAY 1 TO DAY 14
     Route: 048
  2. OXALIPLATIN. [Suspect]
     Active Substance: OXALIPLATIN
     Indication: GASTRIC CANCER
     Dosage: 130 MG/M2 IV INFUSION IN 2 HOURS ON DAY 1
     Route: 042

REACTIONS (17)
  - Fatigue [Unknown]
  - Hepatotoxicity [Unknown]
  - Anaemia [Unknown]
  - White blood cell count decreased [Unknown]
  - Death [Fatal]
  - Nausea [Unknown]
  - Diarrhoea [Unknown]
  - Stomatitis [Unknown]
  - Hypersensitivity [Unknown]
  - Phlebitis [Unknown]
  - Neuropathy peripheral [Unknown]
  - Vomiting [Unknown]
  - Nephropathy toxic [Unknown]
  - Metabolic disorder [Unknown]
  - Neutropenia [Unknown]
  - Palmar-plantar erythrodysaesthesia syndrome [Unknown]
  - Thrombocytopenia [Unknown]
